FAERS Safety Report 25451400 (Version 1)
Quarter: 2025Q2

REPORT INFORMATION
  Report Type: Spontaneous
  Country: US (occurrence: US)
  Receive Date: 20250618
  Receipt Date: 20250618
  Transmission Date: 20250717
  Serious: No
  Sender: PFIZER
  Company Number: US-PFIZER INC-202500123736

PATIENT
  Age: 63 Year
  Sex: Female

DRUGS (7)
  1. BOSULIF [Suspect]
     Active Substance: BOSUTINIB MONOHYDRATE
     Dosage: 400 MG, DAILY
     Dates: start: 20250610
  2. EZETIMIBE [Concomitant]
     Active Substance: EZETIMIBE
  3. INSULIN LISPRO [Concomitant]
     Active Substance: INSULIN LISPRO
  4. DASATINIB [Concomitant]
     Active Substance: DASATINIB
  5. OXYCODONE [Concomitant]
     Active Substance: OXYCODONE
  6. BUPRENORPHINE [Concomitant]
     Active Substance: BUPRENORPHINE
  7. ACETAMINOPHEN [Concomitant]
     Active Substance: ACETAMINOPHEN

REACTIONS (4)
  - Abdominal pain upper [Not Recovered/Not Resolved]
  - Diarrhoea [Not Recovered/Not Resolved]
  - Nausea [Not Recovered/Not Resolved]
  - Fatigue [Not Recovered/Not Resolved]
